FAERS Safety Report 13128888 (Version 1)
Quarter: 2017Q1

REPORT INFORMATION
  Report Type: Report from Study
  Country: None (occurrence: IT)
  Receive Date: 20170119
  Receipt Date: 20170119
  Transmission Date: 20170428
  Serious: Yes (Death)
  Sender: FDA-Public Use
  Company Number: IT-ABBVIE-17K-083-1844148-00

PATIENT
  Age: 72 Year
  Sex: Male
  Weight: 75 kg

DRUGS (1)
  1. DUODOPA [Suspect]
     Active Substance: CARBIDOPA\LEVODOPA
     Indication: PARKINSON^S DISEASE
     Dosage: MD 7.0 +3, CR 3,2, ED 5.0
     Route: 050
     Dates: start: 20100215, end: 20170106

REACTIONS (2)
  - Cardiac arrest [Fatal]
  - Infarction [Fatal]

NARRATIVE: CASE EVENT DATE: 20170106
